FAERS Safety Report 4647116-2 (Version None)
Quarter: 2005Q2

REPORT INFORMATION
  Report Type: 
  Country: None (occurrence: None)
  Receive Date: 20050331
  Receipt Date: 20050124
  Transmission Date: 20051028
  Serious: No
  Sender: FDA-Public Use
  Company Number: 05P-163-0287804-00

PATIENT
  Age: 82 Year
  Sex: Female

DRUGS (1)
  1. HUMIRA [Suspect]
     Dosage: 40 MG, 1 IN 2 WK, SUBCUTANEOUS;  40 MG, 1 IN 1 WK, SUBCUTANEOUS
     Route: 058
     Dates: start: 20030101

REACTIONS (2)
  - DIARRHOEA [None]
  - VOMITING [None]
